FAERS Safety Report 10235694 (Version 1)
Quarter: 2014Q2

REPORT INFORMATION
  Report Type: Spontaneous
  Country: US (occurrence: US)
  Receive Date: 20140613
  Receipt Date: 20140613
  Transmission Date: 20141212
  Serious: No
  Sender: FDA-Public Use
  Company Number: US-BAYER-2014-088790

PATIENT
  Age: 43 Year
  Sex: Male

DRUGS (1)
  1. GADAVIST [Suspect]
     Dosage: 9 ML, ONCE
     Route: 051
     Dates: start: 20140607, end: 20140607

REACTIONS (4)
  - Nausea [Recovered/Resolved]
  - Vomiting [Recovered/Resolved]
  - Urticaria [Recovered/Resolved]
  - Rash [Recovered/Resolved]
